FAERS Safety Report 6991936-6 (Version None)
Quarter: 2010Q3

REPORT INFORMATION
  Report Type: 
  Country: None (occurrence: None)
  Receive Date: 20100917
  Receipt Date: 20100910
  Transmission Date: 20110219
  Serious: Yes (Other)
  Sender: FDA-Public Use
  Company Number: PHHY2010CA55696

PATIENT
  Sex: Female

DRUGS (1)
  1. ESTRADERM [Suspect]
     Indication: MENOPAUSAL SYMPTOMS
     Dosage: TWICE PER WEEK
     Route: 062
     Dates: start: 20100218, end: 20100721

REACTIONS (2)
  - ANAPHYLACTIC REACTION [None]
  - SKIN REACTION [None]
